FAERS Safety Report 4932988-4 (Version None)
Quarter: 2006Q1

REPORT INFORMATION
  Report Type: 
  Country: None (occurrence: None)
  Receive Date: 20060302
  Receipt Date: 20060302
  Transmission Date: 20060701
  Serious: No
  Sender: FDA-Public Use
  Company Number: None

PATIENT
  Sex: Female
  Weight: 87 kg

DRUGS (1)
  1. MESTINON [Suspect]
     Dosage: 1 QD

REACTIONS (1)
  - THERAPEUTIC RESPONSE DECREASED [None]
